FAERS Safety Report 6732965-7 (Version None)
Quarter: 2010Q2

REPORT INFORMATION
  Report Type: 
  Country: None (occurrence: None)
  Receive Date: 20100517
  Receipt Date: 20100507
  Transmission Date: 20101027
  Serious: Yes (Other)
  Sender: FDA-Public Use
  Company Number: US-1181841

PATIENT
  Sex: Male

DRUGS (1)
  1. NEVANAC [Suspect]
     Indication: CATARACT OPERATION
     Dosage: OPHTHALMIC
     Route: 047

REACTIONS (4)
  - ENDOPHTHALMITIS [None]
  - EYE INFECTION BACTERIAL [None]
  - HYPOPYON [None]
  - PRODUCT QUALITY ISSUE [None]
